FAERS Safety Report 4769099-7 (Version None)
Quarter: 2005Q3

REPORT INFORMATION
  Report Type: 
  Country: None (occurrence: None)
  Receive Date: 20050906
  Receipt Date: 20050718
  Transmission Date: 20060218
  Serious: Yes (Hospitalization)
  Sender: FDA-Public Use
  Company Number: 2005-BP-05744BP

PATIENT
  Sex: Female

DRUGS (17)
  1. SPIRIVA [Suspect]
     Indication: CHRONIC OBSTRUCTIVE PULMONARY DISEASE
     Dosage: 18 MCG (18 MCG, 1 CAPSULE QD), IH
     Route: 055
     Dates: start: 20050302
  2. SPIRIVA [Suspect]
     Indication: EMPHYSEMA
     Dosage: 18 MCG (18 MCG, 1 CAPSULE QD), IH
     Route: 055
     Dates: start: 20050302
  3. SPIRIVA [Suspect]
     Indication: PULMONARY FUNCTION TEST
     Dosage: 18 MCG (18 MCG, 1 CAPSULE QD), IH
     Route: 055
     Dates: start: 20050302
  4. OXYGEN (OXYGEN) [Concomitant]
  5. ALBUTEROL [Concomitant]
  6. ZYRTEC [Concomitant]
  7. LIPITOR [Concomitant]
  8. POTASSIUM CHLORIDE [Concomitant]
  9. ICAPS (ICAPS) [Concomitant]
  10. PUMEX [Concomitant]
  11. ZOLOFT [Concomitant]
  12. DYNACIRC [Concomitant]
  13. CALCIUM (CALCIUM) [Concomitant]
  14. BUMETANIDE [Concomitant]
  15. CENTRUM (CENTRUM) [Concomitant]
  16. ASPIRIN [Concomitant]
  17. VITAMIN C (ASCORBIC ACID) [Concomitant]

REACTIONS (1)
  - EPISTAXIS [None]
